FAERS Safety Report 12109223 (Version 1)
Quarter: 2016Q1

REPORT INFORMATION
  Report Type: Spontaneous
  Country: US (occurrence: None)
  Receive Date: 20160223
  Receipt Date: 20160223
  Transmission Date: 20160526
  Serious: Yes (Death)
  Sender: FDA-Public Use
  Company Number: None

PATIENT
  Age: 51 Year
  Sex: Female

DRUGS (9)
  1. FONDAPARINUX INJECTION [Concomitant]
     Active Substance: FONDAPARINUX
  2. LORAZEPAM. [Concomitant]
     Active Substance: LORAZEPAM
  3. HYDROCO/APAP [Concomitant]
     Active Substance: ACETAMINOPHEN\HYDROCODONE
  4. GRANIX [Suspect]
     Active Substance: TBO-FILGRASTIM
     Indication: NEUTROPENIA
     Dosage: 480 MCG Q2 DAYS
     Route: 058
     Dates: start: 201508, end: 201601
  5. ONDANSETRON [Concomitant]
     Active Substance: ONDANSETRON
  6. HYOSCYAMINE. [Concomitant]
     Active Substance: HYOSCYAMINE
  7. MIRTAZAPINE. [Concomitant]
     Active Substance: MIRTAZAPINE
  8. PROCHLORPER [Concomitant]
  9. LEVOFLOXACIN. [Concomitant]
     Active Substance: LEVOFLOXACIN

REACTIONS (1)
  - Death [None]
